FAERS Safety Report 13403540 (Version 2)
Quarter: 2017Q2

REPORT INFORMATION
  Report Type: Report from Study
  Country: LB (occurrence: LB)
  Receive Date: 20170404
  Receipt Date: 20170411
  Transmission Date: 20170830
  Serious: Yes (Other)
  Sender: FDA-Public Use
  Company Number: PHHY2017LB046856

PATIENT
  Age: 47 Year
  Sex: Male

DRUGS (2)
  1. COSENTYX [Suspect]
     Active Substance: SECUKINUMAB
     Indication: PSORIASIS
     Dosage: 300 MG, QW
     Route: 065
     Dates: start: 20170223
  2. COSENTYX [Suspect]
     Active Substance: SECUKINUMAB
     Dosage: 300 MG, QMO (INSTEAD OF 5 CONSECUTIVE WEEKS THEN ONCE MONTHLY)
     Route: 065

REACTIONS (9)
  - Renal pain [Recovered/Resolved]
  - Red blood cell count increased [Unknown]
  - Red cell distribution width increased [Unknown]
  - Fatigue [Recovered/Resolved]
  - Drug prescribing error [Unknown]
  - Haemoglobin decreased [Unknown]
  - Mean cell volume abnormal [Unknown]
  - Neutrophil count increased [Unknown]
  - Mean cell haemoglobin decreased [Unknown]

NARRATIVE: CASE EVENT DATE: 20170320
